FAERS Safety Report 9416307 (Version 1)
Quarter: 2013Q3

REPORT INFORMATION
  Report Type: Spontaneous
  Country: US (occurrence: None)
  Receive Date: 20130718
  Receipt Date: 20130718
  Transmission Date: 20140515
  Serious: Yes (Hospitalization)
  Sender: FDA-Public Use
  Company Number: 2013-297

PATIENT
  Age: 54 Year
  Sex: Male

DRUGS (2)
  1. PRIALT (ZICONOTIDE) INTRATHECAL INFUSION [Suspect]
     Indication: PAIN
     Dosage: UNK, MCG, ONCE/HOUR
  2. DILAUDID (HYDROMORPHONE HYDROCHLORIDE) INJECTION [Suspect]
     Indication: PAIN
     Dosage: UNK MG, ONCE/HOUR, INTRATHECAL
     Route: 037

REACTIONS (10)
  - Salivary hypersecretion [None]
  - Oral discomfort [None]
  - Blood potassium decreased [None]
  - Respiratory tract congestion [None]
  - Cough decreased [None]
  - Throat irritation [None]
  - Discomfort [None]
  - Breath odour [None]
  - Dysgeusia [None]
  - Dysphagia [None]
